FAERS Safety Report 17769910 (Version 1)
Quarter: 2020Q2

REPORT INFORMATION
  Report Type: Spontaneous
  Country: US (occurrence: US)
  Receive Date: 20200512
  Receipt Date: 20200512
  Transmission Date: 20200714
  Serious: No
  Sender: FDA-Public Use
  Company Number: None

PATIENT
  Age: 48 Year
  Sex: Female
  Weight: 75.6 kg

DRUGS (8)
  1. BOTOX [Concomitant]
     Active Substance: ONABOTULINUMTOXINA
  2. SUMATRIPTAN. [Concomitant]
     Active Substance: SUMATRIPTAN
  3. EMGALITY [Suspect]
     Active Substance: GALCANEZUMAB-GNLM
     Indication: MIGRAINE
     Route: 030
     Dates: start: 20190828
  4. ATORVASTATIN [Concomitant]
     Active Substance: ATORVASTATIN
  5. EMGALITY [Concomitant]
     Active Substance: GALCANEZUMAB-GNLM
  6. OMEPRAZOLE. [Concomitant]
     Active Substance: OMEPRAZOLE
  7. MULTIVITAMIN [Concomitant]
     Active Substance: VITAMINS
  8. FISH OIL [Concomitant]
     Active Substance: FISH OIL

REACTIONS (1)
  - Alopecia [None]

NARRATIVE: CASE EVENT DATE: 20200115
